FAERS Safety Report 15378565 (Version 2)
Quarter: 2018Q4

REPORT INFORMATION
  Report Type: Spontaneous
  Country: US (occurrence: US)
  Receive Date: 20180913
  Receipt Date: 20181114
  Transmission Date: 20190204
  Serious: Yes (Hospitalization)
  Sender: FDA-Public Use
  Company Number: US-CELGENEUS-USA-20180901055

PATIENT
  Age: 42 Year
  Sex: Female

DRUGS (1)
  1. OTEZLA [Suspect]
     Active Substance: APREMILAST
     Indication: PSORIASIS
     Dosage: 10,20,30 MILLIGRAM
     Route: 048
     Dates: start: 20180815, end: 20180828

REACTIONS (1)
  - Gene mutation [Recovered/Resolved]

NARRATIVE: CASE EVENT DATE: 20180831
